FAERS Safety Report 6950863-0 (Version None)
Quarter: 2010Q3

REPORT INFORMATION
  Report Type: 
  Country: None (occurrence: None)
  Receive Date: 20100828
  Receipt Date: 20100225
  Transmission Date: 20110219
  Serious: No
  Sender: FDA-Public Use
  Company Number: US-ABBOTT-10P-163-0629744-00

PATIENT
  Age: 86 Year
  Sex: Male

DRUGS (2)
  1. NIASPAN [Suspect]
     Indication: CAROTID ARTERY DISEASE
     Route: 048
  2. DIOVAN [Concomitant]
     Indication: HYPERTENSION

REACTIONS (3)
  - ABNORMAL DREAMS [None]
  - HYPNAGOGIC HALLUCINATION [None]
  - INSOMNIA [None]
